FAERS Safety Report 6145238-0 (Version None)
Quarter: 2009Q2

REPORT INFORMATION
  Report Type: 
  Country: None (occurrence: None)
  Receive Date: 20090401
  Receipt Date: 20090324
  Transmission Date: 20091009
  Serious: Yes (Hospitalization, Other)
  Sender: FDA-Public Use
  Company Number: 2009JP001457

PATIENT
  Age: 88 Year
  Sex: Female
  Weight: 42 kg

DRUGS (12)
  1. PROGRAF [Suspect]
     Indication: RHEUMATOID ARTHRITIS
     Dosage: 0.5 MG, UID/QD, ORAL
     Route: 048
     Dates: start: 20080812, end: 20090127
  2. CEFDINIR [Suspect]
     Indication: INFECTION PROPHYLAXIS
     Dosage: 100 MG, TID, ORAL
     Route: 048
     Dates: start: 20090119, end: 20090123
  3. BREDNIN (MIZORIBINE) TABLET [Suspect]
     Indication: RHEUMATOID ARTHRITIS
     Dosage: 50 MG, TID, ORAL
     Route: 048
     Dates: start: 20090113, end: 20090128
  4. ALENDRONATE SODIUM [Suspect]
     Indication: OSTEOPOROSIS
     Dosage: 35 MG, WEEKLY, ORAL
     Route: 048
     Dates: end: 20090127
  5. PRAVASTATIN SODIUM [Suspect]
     Indication: HYPERLIPIDAEMIA
     Dosage: 10 MG, UID/QD, ORAL
     Route: 048
     Dates: end: 20090127
  6. BUFFERIN [Suspect]
     Dosage: 81 MG, UID/QD, ORAL
     Route: 048
     Dates: end: 20090127
  7. BASEN (VOGLIBOSE) ORODISPERSIBLE CR TABET [Suspect]
     Indication: DIABETES MELLITUS
     Dosage: 0.3 MG, TID, ORAL
     Route: 048
     Dates: end: 20090126
  8. ISOSORBIDE DINITRATE [Suspect]
     Dosage: 20 MG, BID, ORAL
     Route: 048
     Dates: start: 20090119, end: 20090127
  9. PREDNISOLONE [Concomitant]
  10. PREDNISOLONE (PREDINOSOLONE) [Concomitant]
  11. ENBREL [Concomitant]
  12. ULTIVA [Concomitant]

REACTIONS (3)
  - DEHYDRATION [None]
  - DIARRHOEA [None]
  - RENAL FUNCTION TEST ABNORMAL [None]
